FAERS Safety Report 15588445 (Version 1)
Quarter: 2018Q4

REPORT INFORMATION
  Report Type: Spontaneous
  Country: HR (occurrence: HR)
  Receive Date: 20181105
  Receipt Date: 20181105
  Transmission Date: 20190205
  Serious: Yes (Other)
  Sender: FDA-Public Use
  Company Number: HR-ASTRAZENECA-2018SF42617

PATIENT
  Sex: Male

DRUGS (5)
  1. QUETIAPINE FUMARATE. [Suspect]
     Active Substance: QUETIAPINE FUMARATE
     Route: 048
     Dates: start: 20180901, end: 20180901
  2. NORMABEL [Suspect]
     Active Substance: DIAZEPAM
     Route: 048
     Dates: start: 20180901, end: 20180901
  3. NEBILET [Suspect]
     Active Substance: NEBIVOLOL
     Route: 048
     Dates: start: 20180901, end: 20180901
  4. VALSACOR [Suspect]
     Active Substance: VALSARTAN
     Route: 048
     Dates: start: 20180901, end: 20180901
  5. LERCANIDIPINE [Suspect]
     Active Substance: LERCANIDIPINE
     Route: 048
     Dates: start: 20180901, end: 20180901

REACTIONS (3)
  - Intentional overdose [Unknown]
  - Suicide attempt [Unknown]
  - Blood pressure decreased [Unknown]

NARRATIVE: CASE EVENT DATE: 20180901
